FAERS Safety Report 4315867-5 (Version None)
Quarter: 2004Q1

REPORT INFORMATION
  Report Type: 
  Country: None (occurrence: None)
  Receive Date: 20040310
  Receipt Date: 20040225
  Transmission Date: 20041129
  Serious: Yes (Congenital Anomaly)
  Sender: FDA-Public Use
  Company Number: 2004-BP-01410BP

PATIENT
  Age: 0 Day
  Sex: Female
  Weight: 3.316 kg

DRUGS (2)
  1. VIRAMUNE [Suspect]
     Indication: HIV INFECTION
     Dosage: 400 MG (NR), IU
     Dates: start: 20030829
  2. COMBIVIR [Suspect]
     Indication: HIV INFECTION
     Dosage: SEE TEXT (NR, LAMIVUDINE 300 MG/ ZIDOVUDINE 600 MG), IU
     Dates: start: 20030829

REACTIONS (3)
  - CARDIAC MURMUR [None]
  - MATERNAL DRUGS AFFECTING FOETUS [None]
  - NEONATAL DISORDER [None]
